FAERS Safety Report 16782911 (Version 1)
Quarter: 2019Q3

REPORT INFORMATION
  Report Type: Spontaneous
  Country: CN (occurrence: CN)
  Receive Date: 20190906
  Receipt Date: 20190906
  Transmission Date: 20191005
  Serious: Yes (Other)
  Sender: FDA-Public Use
  Company Number: CN-GLAXOSMITHKLINE-CN2019APC159440

PATIENT

DRUGS (3)
  1. THEOPHYLLINE [Suspect]
     Active Substance: THEOPHYLLINE ANHYDROUS
     Indication: ASTHMA
     Dosage: UNK (SUSTAINED RELEASE CAPSULE)
     Route: 048
     Dates: start: 20190830
  2. DESLORATADINE CITRATE DISODIUM [Suspect]
     Active Substance: DESLORATADINE
     Indication: ASTHMA
     Dosage: UNK
     Route: 048
     Dates: start: 20190830
  3. SERETIDE [Suspect]
     Active Substance: FLUTICASONE PROPIONATE\SALMETEROL XINAFOATE
     Indication: ASTHMA
     Dosage: UNK (50/250UG 60S)
     Route: 055
     Dates: start: 20190830

REACTIONS (4)
  - Heart rate increased [Not Recovered/Not Resolved]
  - Blepharospasm [Not Recovered/Not Resolved]
  - Syncope [Recovered/Resolved]
  - Speech disorder [Not Recovered/Not Resolved]

NARRATIVE: CASE EVENT DATE: 20190830
